FAERS Safety Report 6774897-4 (Version None)
Quarter: 2010Q2

REPORT INFORMATION
  Report Type: 
  Country: None (occurrence: None)
  Receive Date: 20100616
  Receipt Date: 20100616
  Transmission Date: 20101027
  Serious: Yes (Other)
  Sender: FDA-Public Use
  Company Number: None

PATIENT
  Age: 51 Year
  Sex: Female
  Weight: 89.8122 kg

DRUGS (1)
  1. PREDNISONE [Suspect]
     Indication: BURSITIS
     Dates: start: 20081113, end: 20081123

REACTIONS (4)
  - ANGIOPATHY [None]
  - GAIT DISTURBANCE [None]
  - OEDEMA PERIPHERAL [None]
  - PAIN [None]
